FAERS Safety Report 7546254-4 (Version None)
Quarter: 2011Q2

REPORT INFORMATION
  Report Type: 
  Country: None (occurrence: None)
  Receive Date: 20110614
  Receipt Date: 20040402
  Transmission Date: 20111010
  Serious: Yes (Other)
  Sender: FDA-Public Use
  Company Number: PHFR2004GB01229

PATIENT
  Sex: Male

DRUGS (3)
  1. RIBAVIRIN [Suspect]
     Indication: HEPATITIS C
     Route: 065
  2. CLOZAPINE [Suspect]
     Indication: SCHIZOPHRENIA
     Route: 048
     Dates: start: 20040109, end: 20040223
  3. INTERFERON [Suspect]
     Indication: HEPATITIS C

REACTIONS (4)
  - NEUTROPHIL COUNT DECREASED [None]
  - HEPATITIS C [None]
  - MALAISE [None]
  - WHITE BLOOD CELL COUNT DECREASED [None]
